FAERS Safety Report 10248605 (Version 1)
Quarter: 2014Q2

REPORT INFORMATION
  Report Type: Spontaneous
  Country: CH (occurrence: CH)
  Receive Date: 20140620
  Receipt Date: 20140620
  Transmission Date: 20141212
  Serious: Yes (Other)
  Sender: FDA-Public Use
  Company Number: PHHY2014CH075968

PATIENT
  Age: 73 Year
  Sex: Female

DRUGS (3)
  1. ZOLEDRONIC ACID [Suspect]
     Indication: METASTASES TO BONE
     Dosage: 4 MG, EVERY 28 DAY
     Route: 042
     Dates: start: 20120417, end: 20130507
  2. MIRTAZAPINE [Concomitant]
     Indication: AFFECTIVE DISORDER
     Dosage: UNK UKN, UNK
  3. PANTOPRAZOL [Concomitant]
     Dosage: UNK UKN, UNK

REACTIONS (1)
  - Osteonecrosis [Recovered/Resolved]
